FAERS Safety Report 8241573-0 (Version None)
Quarter: 2012Q1

REPORT INFORMATION
  Report Type: 
  Country: None (occurrence: None)
  Receive Date: 20120328
  Receipt Date: 20120326
  Transmission Date: 20120608
  Serious: Yes (Death, Other)
  Sender: FDA-Public Use
  Company Number: US-PFIZER INC-2012060169

PATIENT
  Sex: Male
  Weight: 88.435 kg

DRUGS (1)
  1. RAPAMUNE [Suspect]
     Dosage: UNK

REACTIONS (2)
  - HEPATIC FAILURE [None]
  - DEATH [None]
